FAERS Safety Report 8790478 (Version 3)
Quarter: 2012Q4

REPORT INFORMATION
  Report Type: Spontaneous
  Country: JP (occurrence: None)
  Receive Date: 20120906
  Receipt Date: 20120925
  Transmission Date: 20130627
  Serious: Yes (Death, Life-Threatening, Other)
  Sender: FDA-Public Use
  Company Number: JP-2012-16149

PATIENT
  Age: 72 Year
  Sex: Female
  Weight: 41 kg

DRUGS (19)
  1. SAMSCA [Suspect]
     Indication: CARDIAC FAILURE
     Route: 048
     Dates: start: 201204, end: 20120811
  2. BAYASPIRIN (ACETYLSALICYLIC ACID) [Concomitant]
  3. PLAVIX (CLOPIDOGREL SULFATE) [Concomitant]
  4. HALFIDIGOXIN (DIGOXIN) [Concomitant]
  5. LASIX (FUROSEMIDE) [Concomitant]
  6. TAKEPRON (LANSOPRAZOLE) [Concomitant]
  7. SELARA (EPLERENONE) [Concomitant]
  8. ITOROL (ISOSORBIDE MONONITRATE) [Concomitant]
  9. ACARDI (PIMOBENDAN) [Concomitant]
  10. ARTIST (CARVEDILOL) [Concomitant]
  11. ZYLORIC (ALLOPURINOL) [Concomitant]
  12. FLUITRAN (TRICHLORMETHIAZIDE) [Concomitant]
  13. CINAL (ASCORBIC ACID, CALCIUM PANTOTHENATE) [Concomitant]
  14. FERROMIA (FERROUS SODIUM CITRATE) [Concomitant]
  15. NEUQUINON (UBIDECARENONE) [Concomitant]
  16. MEXITIL (MEXILETINE HYDROCHLORIDE) [Concomitant]
  17. GASMOTIN (MOSAPRIDE CITRATE) [Concomitant]
  18. URSO (URSODEOXYCHLIC ACID) [Concomitant]
  19. LIPITOR (ATORVASTATIN CALCIUM) [Concomitant]

REACTIONS (12)
  - Hypernatraemia [None]
  - Cardiac failure [None]
  - Infection [None]
  - Pneumonia [None]
  - Pulmonary congestion [None]
  - Blood creatinine increased [None]
  - Blood chloride increased [None]
  - Cardiomegaly [None]
  - Blood pressure decreased [None]
  - Depressed level of consciousness [None]
  - Fluid intake reduced [None]
  - Aspartate aminotransferase increased [None]
